FAERS Safety Report 7779824-9 (Version None)
Quarter: 2011Q3

REPORT INFORMATION
  Report Type: 
  Country: None (occurrence: None)
  Receive Date: 20110927
  Receipt Date: 20110919
  Transmission Date: 20111222
  Serious: Yes (Other)
  Sender: FDA-Public Use
  Company Number: US-PFIZER INC-2011154610

PATIENT
  Sex: Female
  Weight: 74.83 kg

DRUGS (14)
  1. TOVIAZ [Suspect]
     Indication: HYPERTONIC BLADDER
     Dosage: 4 MG, 1X/DAY
     Route: 048
     Dates: start: 20090101, end: 20110701
  2. VITAMIN B COMPLEX CAP [Concomitant]
     Dosage: UNK
     Route: 048
  3. BETASERON [Concomitant]
     Indication: MULTIPLE SCLEROSIS
     Dosage: UNK
  4. MULTI-VITAMINS [Concomitant]
     Dosage: UNK
  5. FISH OIL [Concomitant]
     Dosage: UNK
     Route: 048
  6. TOVIAZ [Suspect]
     Dosage: 4 MG, 2X/DAY
     Dates: start: 20110101, end: 20110802
  7. CALCIUM [Concomitant]
     Dosage: UNK
     Route: 048
  8. VITAMIN E [Concomitant]
     Dosage: UNK
     Route: 048
  9. VITAMIN B COMPLEX CAP [Concomitant]
     Dosage: UNK
     Route: 048
  10. TOVIAZ [Suspect]
     Indication: URINARY INCONTINENCE
     Dosage: 8 MG, AT NIGHT
     Route: 048
     Dates: start: 20110725, end: 20110101
  11. VITAMIN D [Concomitant]
     Dosage: UNK
     Route: 048
  12. FLAXSEED OIL [Concomitant]
     Dosage: UNK
     Route: 048
  13. VITAMIN B-12 [Concomitant]
     Dosage: UNK
     Route: 048
  14. ASPIRIN [Concomitant]
     Dosage: 81 MG, UNK

REACTIONS (3)
  - NOCTURIA [None]
  - DRY MOUTH [None]
  - PETECHIAE [None]
